FAERS Safety Report 6647682-1 (Version None)
Quarter: 2010Q1

REPORT INFORMATION
  Report Type: 
  Country: None (occurrence: None)
  Receive Date: 20100323
  Receipt Date: 20100323
  Transmission Date: 20100710
  Serious: Yes (Other)
  Sender: FDA-Public Use
  Company Number: None

PATIENT
  Sex: Female
  Weight: 59.8748 kg

DRUGS (2)
  1. LISINOPRIL [Suspect]
     Indication: HYPERTENSION
     Dosage: 2.5 MG 1 EVERY DAY
     Dates: start: 20091030, end: 20100303
  2. ZOCOR [Concomitant]

REACTIONS (3)
  - COUGH [None]
  - ECZEMA [None]
  - PRURITUS GENERALISED [None]
